FAERS Safety Report 5951821-5 (Version None)
Quarter: 2008Q4

REPORT INFORMATION
  Report Type: 
  Country: None (occurrence: None)
  Receive Date: 20081113
  Receipt Date: 20081107
  Transmission Date: 20090506
  Serious: Yes (Hospitalization)
  Sender: FDA-Public Use
  Company Number: B0537009A

PATIENT
  Age: 42 Year
  Sex: Male
  Weight: 74.2 kg

DRUGS (5)
  1. ABACAVIR SULFATE/LAMIVUDINE [Suspect]
     Indication: HIV INFECTION
     Route: 048
     Dates: start: 20070828
  2. ATAZANAVIR SULFATE [Suspect]
     Indication: HIV INFECTION
     Dosage: 300MG PER DAY
     Route: 048
     Dates: start: 20070828
  3. RITONAVIR [Suspect]
     Indication: HIV INFECTION
     Dosage: 100MG PER DAY
     Route: 048
     Dates: start: 20070828
  4. PREVACID [Concomitant]
     Dosage: 30MG PER DAY
     Route: 048
     Dates: start: 20080910, end: 20080911
  5. PRAVACHOL [Concomitant]
     Dosage: 20MG PER DAY
     Route: 048
     Dates: start: 20080918

REACTIONS (3)
  - CEREBROVASCULAR ACCIDENT [None]
  - HEMIPARESIS [None]
  - THALAMIC INFARCTION [None]
